FAERS Safety Report 4309041-6 (Version None)
Quarter: 2004Q1

REPORT INFORMATION
  Report Type: 
  Country: None (occurrence: None)
  Receive Date: 20040227
  Receipt Date: 20040216
  Transmission Date: 20041129
  Serious: Yes (Hospitalization)
  Sender: FDA-Public Use
  Company Number: 2004196891SE

PATIENT
  Sex: Male

DRUGS (1)
  1. CELEBREX [Suspect]
     Indication: TOOTHACHE
     Dates: start: 20000101, end: 20000101

REACTIONS (2)
  - CARDIAC FAILURE CONGESTIVE [None]
  - NOCTURIA [None]
